FAERS Safety Report 9453654 (Version 1)
Quarter: 2013Q1

REPORT INFORMATION
  Report Type: Not Available
  Country: US (occurrence: US)
  Receive Date: 20120321
  Receipt Date: 20120321
  Transmission Date: 20140127
  Serious: Yes (Hospitalization, Other)
  Sender: FDA-Public Use
  Company Number: US-LUNDBECK-DKLU1075443

PATIENT
  Age: 55 None
  Sex: Male

DRUGS (4)
  1. SABRIL     (TABLET) [Suspect]
     Indication: EPILEPSY
     Route: 048
  2. SABRIL     (TABLET) [Suspect]
     Indication: CONVULSION
     Route: 048
     Dates: start: 20111209, end: 20111212
  3. SABRIL     (TABLET) [Suspect]
     Indication: COMPLEX PARTIAL SEIZURES
     Route: 048
     Dates: start: 20111212
  4. SABRIL     (TABLET) [Suspect]
     Route: 048

REACTIONS (4)
  - Convulsion [Unknown]
  - Hospitalisation [Recovered/Resolved]
  - Hypersomnia [Recovered/Resolved]
  - Incorrect dose administered [Recovered/Resolved]
